FAERS Safety Report 17975990 (Version 4)
Quarter: 2020Q3

REPORT INFORMATION
  Report Type: Spontaneous
  Country: GB (occurrence: GB)
  Receive Date: 20200702
  Receipt Date: 20200828
  Transmission Date: 20201103
  Serious: Yes (Hospitalization)
  Sender: FDA-Public Use
  Company Number: GB-NOVOPROD-735445

PATIENT
  Age: 62 Year
  Sex: Male
  Weight: 87.2 kg

DRUGS (11)
  1. NOVORAPID [Suspect]
     Active Substance: INSULIN ASPART
     Dosage: UNK ( SYRINGE)
     Route: 065
     Dates: start: 20200609
  2. NOVORAPID [Suspect]
     Active Substance: INSULIN ASPART
     Dosage: UNK
     Route: 058
     Dates: start: 20200609
  3. NOVORAPID [Suspect]
     Active Substance: INSULIN ASPART
     Dosage: UNK ( INFUSION)
     Route: 042
     Dates: start: 20200612
  4. NOVORAPID [Suspect]
     Active Substance: INSULIN ASPART
     Dosage: UNK ( INFUSION)
     Route: 065
     Dates: start: 20200614
  5. NOVORAPID [Suspect]
     Active Substance: INSULIN ASPART
     Indication: PRODUCT USED FOR UNKNOWN INDICATION
     Dosage: UNK
     Route: 058
     Dates: end: 20200608
  6. LANTUS [Concomitant]
     Active Substance: INSULIN GLARGINE
     Indication: BLOOD GLUCOSE INCREASED
     Dosage: UNK
     Route: 065
  7. NOVORAPID [Suspect]
     Active Substance: INSULIN ASPART
     Dosage: UNK
     Route: 058
     Dates: start: 20200613
  8. NOVORAPID [Suspect]
     Active Substance: INSULIN ASPART
     Dosage: UNK
     Route: 065
     Dates: start: 20200616, end: 20200620
  9. NOVORAPID [Suspect]
     Active Substance: INSULIN ASPART
     Dosage: UNK ( NEW BOTTLE)
     Route: 058
     Dates: start: 20200608
  10. NOVORAPID [Suspect]
     Active Substance: INSULIN ASPART
     Dosage: UNK ( NEW BOTTLE)
     Route: 058
     Dates: start: 20200609
  11. NOVORAPID [Suspect]
     Active Substance: INSULIN ASPART
     Dosage: UNK
     Route: 065
     Dates: start: 20200615

REACTIONS (6)
  - Product quality issue [Unknown]
  - Diabetic ketoacidosis [Recovered/Resolved]
  - Wrong technique in product usage process [Unknown]
  - Drug ineffective [Recovered/Resolved]
  - Diabetic nephropathy [Recovered/Resolved]
  - Hypoglycaemia [Unknown]

NARRATIVE: CASE EVENT DATE: 20200617
